FAERS Safety Report 10081018 (Version 1)
Quarter: 2014Q2

REPORT INFORMATION
  Report Type: Spontaneous
  Country: US (occurrence: US)
  Receive Date: 20140416
  Receipt Date: 20140416
  Transmission Date: 20141212
  Serious: No
  Sender: FDA-Public Use
  Company Number: US-PFIZER INC-2014101027

PATIENT
  Age: 65 Year
  Sex: Male
  Weight: 117.9 kg

DRUGS (9)
  1. ARTHROTEC [Suspect]
     Indication: ARTHRITIS
     Dosage: UNK
  2. ARTHROTEC [Suspect]
     Indication: INTERVERTEBRAL DISC PROTRUSION
  3. PIROXICAM [Suspect]
     Indication: ARTHRITIS
     Dosage: UNK
  4. PIROXICAM [Suspect]
     Indication: INTERVERTEBRAL DISC PROTRUSION
  5. ACTOS [Concomitant]
     Indication: DIABETES MELLITUS
     Dosage: UNK
  6. PAXIL [Concomitant]
     Dosage: UNK
  7. MAVIK [Concomitant]
     Dosage: UNK
  8. XANAX [Concomitant]
     Dosage: UNK
  9. ATENOLOL [Concomitant]
     Dosage: UNK

REACTIONS (4)
  - Gastric disorder [Unknown]
  - Abdominal distension [Unknown]
  - Pain [Unknown]
  - Abdominal distension [Unknown]
